FAERS Safety Report 21885674 (Version 1)
Quarter: 2023Q1

REPORT INFORMATION
  Report Type: Spontaneous
  Country: KR (occurrence: KR)
  Receive Date: 20230119
  Receipt Date: 20230119
  Transmission Date: 20230417
  Serious: No
  Sender: FDA-Public Use
  Company Number: KR-PFIZER INC-PV202300009775

PATIENT
  Sex: Male

DRUGS (1)
  1. PAXLOVID [Suspect]
     Active Substance: NIRMATRELVIR\RITONAVIR
     Dosage: [PF-07321332 300 MG]/[RITONAVIR 100 MG]; EVERY 12 HOURS
     Route: 048
     Dates: start: 20230116

REACTIONS (2)
  - Malaise [Not Recovered/Not Resolved]
  - Incorrect product administration duration [Unknown]
